FAERS Safety Report 7645068-4 (Version None)
Quarter: 2011Q3

REPORT INFORMATION
  Report Type: 
  Country: None (occurrence: None)
  Receive Date: 20110725
  Receipt Date: 20110708
  Transmission Date: 20111222
  Serious: Yes (Life-Threatening)
  Sender: FDA-Public Use
  Company Number: FK201101334

PATIENT
  Age: 1 Year
  Sex: Male

DRUGS (7)
  1. PROPOFOL [Suspect]
     Indication: INDUCTION OF ANAESTHESIA
     Dosage: INTRAVENOUS (NOT OTHERWISE SPECIFIED)
     Route: 042
     Dates: start: 20110615, end: 20110615
  2. ONDANSETRON (MANUFACTURER UNKNOWN) (ONDANSETRON) (ONDANSETRON) [Suspect]
     Indication: NAUSEA
     Dosage: INTRAVENOUS (NOT OTHERWISE SPECIFIED)
     Route: 042
     Dates: start: 20110616, end: 20110618
  3. SUFENTANIL (SUFENTANIL) (SUFENTANIL) [Suspect]
     Indication: GENERAL ANAESTHESIA
     Dates: start: 20110615
  4. SEVOFLURANE (SEVOFLURANE) (SEVOFLURANE) [Suspect]
     Indication: GENERAL ANAESTHESIA
     Dates: start: 20110615, end: 20110615
  5. NALBUPHINE (NALBUPHINE) (NALBUPHINE) [Suspect]
     Indication: PAIN
     Dates: start: 20110615, end: 20110620
  6. CEFAMANDOLE (CEFAMANDOLE) (DEFAMANDOLE) [Suspect]
     Indication: PRODUCT USED FOR UNKNOWN INDICATION
  7. ATROPINE (ATROPINE) (ATROPINE) [Suspect]
     Indication: GENERAL ANAESTHESIA
     Dates: start: 20110615

REACTIONS (2)
  - RENAL FAILURE [None]
  - HYPONATRAEMIA [None]
